FAERS Safety Report 12835164 (Version 1)
Quarter: 2016Q4

REPORT INFORMATION
  Report Type: Spontaneous
  Country: CA (occurrence: CA)
  Receive Date: 20161011
  Receipt Date: 20161011
  Transmission Date: 20170207
  Serious: Yes (Hospitalization, Other)
  Sender: FDA-Public Use
  Company Number: CA-ORION CORPORATION ORION PHARMA-TREX2016-0326

PATIENT
  Age: 59 Year
  Sex: Male

DRUGS (7)
  1. OLMETEC [Concomitant]
     Active Substance: OLMESARTAN MEDOXOMIL
     Dosage: STRENGTH: 20 MG
     Route: 065
  2. PERCOCET [Concomitant]
     Active Substance: ACETAMINOPHEN\OXYCODONE HYDROCHLORIDE
     Route: 065
  3. TECTA [Concomitant]
     Active Substance: PANTOPRAZOLE MAGNESIUM
     Dosage: STRENGTH: 40 MG
     Route: 065
  4. XELJANZ [Suspect]
     Active Substance: TOFACITINIB CITRATE
     Indication: RHEUMATOID ARTHRITIS
     Route: 048
     Dates: start: 20150501, end: 201512
  5. METHOTREXATE (TRADE NAME UNKNOWN) [Suspect]
     Active Substance: METHOTREXATE
     Indication: RHEUMATOID ARTHRITIS
     Route: 065
  6. FENTANYL. [Concomitant]
     Active Substance: FENTANYL
     Dosage: STRENGTH: 100 UG/H
     Route: 062
  7. XELJANZ [Suspect]
     Active Substance: TOFACITINIB CITRATE
     Route: 048
     Dates: start: 201602, end: 20160620

REACTIONS (9)
  - Clostridium difficile infection [Unknown]
  - Haematochezia [Recovered/Resolved]
  - Pain in extremity [Recovering/Resolving]
  - Stress [Not Recovered/Not Resolved]
  - Musculoskeletal pain [Recovering/Resolving]
  - Drug effect incomplete [Unknown]
  - Middle insomnia [Recovering/Resolving]
  - Joint swelling [Unknown]
  - Initial insomnia [Recovering/Resolving]

NARRATIVE: CASE EVENT DATE: 201512
